FAERS Safety Report 8782899 (Version 1)
Quarter: 2012Q4

REPORT INFORMATION
  Report Type: Report from Study
  Country: GB (occurrence: GB)
  Receive Date: 20120913
  Receipt Date: 20120913
  Transmission Date: 20130627
  Serious: Yes (Hospitalization)
  Sender: FDA-Public Use
  Company Number: GB-ROCHE-1122905

PATIENT
  Age: 77 Year
  Sex: Male

DRUGS (3)
  1. AVASTIN [Suspect]
     Indication: COLON CANCER
     Dosage: Date of last dose: 20 Aug 2012
     Route: 065
     Dates: start: 20110905
  2. OXALIPLATIN [Suspect]
     Indication: COLON CANCER
     Dosage: Date of last dose: 27 Feb 2012
     Route: 065
     Dates: start: 20110919
  3. 5-FLUOROURACIL [Suspect]
     Indication: COLON CANCER
     Dosage: date of last dose: 20 Aug 2012
     Route: 065
     Dates: start: 20110919

REACTIONS (1)
  - Confusional state [Not Recovered/Not Resolved]
